FAERS Safety Report 6453526-3 (Version None)
Quarter: 2009Q4

REPORT INFORMATION
  Report Type: 
  Country: None (occurrence: None)
  Receive Date: 20091124
  Receipt Date: 20091117
  Transmission Date: 20100525
  Serious: Yes (Hospitalization, Other)
  Sender: FDA-Public Use
  Company Number: US-BAYER-200939822NA

PATIENT
  Age: 47 Year
  Sex: Female
  Weight: 79 kg

DRUGS (2)
  1. MIRENA [Suspect]
     Indication: CONTRACEPTION
     Dosage: CONTINUOUS
     Route: 015
     Dates: start: 20070417
  2. TAMOXIFEN CITRATE [Concomitant]

REACTIONS (4)
  - AMENORRHOEA [None]
  - BREAST CANCER FEMALE [None]
  - COITAL BLEEDING [None]
  - OVARIAN CYST [None]
